FAERS Safety Report 10467712 (Version 5)
Quarter: 2015Q2

REPORT INFORMATION
  Report Type: Spontaneous
  Country: US (occurrence: US)
  Receive Date: 20140922
  Receipt Date: 20150626
  Transmission Date: 20150821
  Serious: Yes (Hospitalization, Other)
  Sender: FDA-Public Use
  Company Number: US-BAYER-2014-140864

PATIENT
  Age: 24 Year
  Sex: Female
  Weight: 68.2 kg

DRUGS (7)
  1. KEFLEX [Concomitant]
     Active Substance: CEPHALEXIN
  2. MIRENA [Suspect]
     Active Substance: LEVONORGESTREL
     Indication: CONTRACEPTION
     Dosage: 20 MCG/24HR, CONT
     Route: 015
     Dates: start: 20070305, end: 20121004
  3. YAZ [Concomitant]
     Active Substance: DROSPIRENONE\ETHINYL ESTRADIOL
  4. ORTHO TRI CYCLEN [Concomitant]
     Active Substance: ETHINYL ESTRADIOL\NORGESTIMATE
  5. MIDOL [CAFFEINE,MEPYRAMINE MALEATE,PARACETAMOL] [Concomitant]
  6. DOXYCYCLINE. [Concomitant]
     Active Substance: DOXYCYCLINE
  7. LORTAB [Concomitant]
     Active Substance: ACETAMINOPHEN\HYDROCODONE BITARTRATE

REACTIONS (22)
  - Injury [None]
  - Medical device discomfort [None]
  - Fear [None]
  - Pelvic pain [None]
  - Abdominal pain [None]
  - Depression [None]
  - Habitual abortion [None]
  - Drug ineffective [None]
  - Genital haemorrhage [None]
  - Emotional distress [None]
  - Device use error [None]
  - Pregnancy with contraceptive device [None]
  - Infertility female [None]
  - Panic attack [None]
  - Uterine perforation [None]
  - Anger [None]
  - Anxiety [None]
  - General physical health deterioration [None]
  - Device misuse [None]
  - Internal injury [None]
  - Depressed mood [None]
  - Device issue [None]

NARRATIVE: CASE EVENT DATE: 200703
